FAERS Safety Report 9344291 (Version 1)
Quarter: 2013Q2

REPORT INFORMATION
  Report Type: Spontaneous
  Country: US (occurrence: None)
  Receive Date: 20130611
  Receipt Date: 20130611
  Transmission Date: 20140414
  Serious: Yes (Death)
  Sender: FDA-Public Use
  Company Number: None

PATIENT
  Sex: Male

DRUGS (5)
  1. FLUCONAZOLE [Suspect]
     Indication: RENAL TRANSPLANT
     Dosage: 1 TABLET DAILY ORAL
     Route: 048
     Dates: start: 20130408, end: 20130605
  2. VALCYTE [Suspect]
     Indication: RENAL TRANSPLANT
     Dates: start: 20130408
  3. DAPSONE [Concomitant]
  4. ASPIRIN [Concomitant]
  5. AMLODIPINE [Concomitant]

REACTIONS (1)
  - Death [None]
